FAERS Safety Report 4761601-4 (Version None)
Quarter: 2005Q3

REPORT INFORMATION
  Report Type: 
  Country: None (occurrence: None)
  Receive Date: 20050906
  Receipt Date: 20050802
  Transmission Date: 20060218
  Serious: Yes (Hospitalization, Other)
  Sender: FDA-Public Use
  Company Number: JP-BRISTOL-MYERS SQUIBB COMPANY-13069208

PATIENT
  Age: 18 Year
  Sex: Female

DRUGS (5)
  1. GATIFLO TABS [Suspect]
     Indication: TONSILLITIS
     Route: 048
     Dates: start: 20050617, end: 20050617
  2. DASEN [Suspect]
     Indication: TONSILLITIS
     Route: 048
     Dates: start: 20050617, end: 20050617
  3. MUCOSOLVAN [Suspect]
     Indication: TONSILLITIS
     Route: 048
     Dates: start: 20050617, end: 20050617
  4. MUCODYNE [Suspect]
     Indication: TONSILLITIS
     Route: 048
     Dates: start: 20050617, end: 20050617
  5. KIKYO-TO [Suspect]
     Indication: TONSILLITIS
     Route: 048
     Dates: start: 20050617, end: 20050617

REACTIONS (4)
  - ANAPHYLACTIC SHOCK [None]
  - FACE OEDEMA [None]
  - HYPOTENSION [None]
  - URTICARIA [None]
